FAERS Safety Report 20140284 (Version 2)
Quarter: 2022Q2

REPORT INFORMATION
  Report Type: Spontaneous
  Country: BR (occurrence: BR)
  Receive Date: 20211202
  Receipt Date: 20220509
  Transmission Date: 20220721
  Serious: Yes (Other)
  Sender: FDA-Public Use
  Company Number: BR-009507513-1910BRA008488

PATIENT
  Age: 16 Year
  Sex: Female
  Weight: 70 kg

DRUGS (1)
  1. IMPLANON [Suspect]
     Active Substance: ETONOGESTREL
     Dosage: IMPLANT, IN HER LEFT ARM
     Route: 059
     Dates: start: 20180711

REACTIONS (15)
  - Pregnancy with implant contraceptive [Unknown]
  - Oligohydramnios [Unknown]
  - Major depression [Unknown]
  - Mental disorder [Unknown]
  - Haematoma [Unknown]
  - Maternal exposure during breast feeding [Not Recovered/Not Resolved]
  - Drug ineffective [Unknown]
  - Unintended pregnancy [Unknown]
  - Complication associated with device [Not Recovered/Not Resolved]
  - Headache [Unknown]
  - Menstrual disorder [Unknown]
  - Discomfort [Unknown]
  - Product use issue [Unknown]
  - Product administered to patient of inappropriate age [Unknown]
  - Incorrect product administration duration [Unknown]

NARRATIVE: CASE EVENT DATE: 20180711
